FAERS Safety Report 6289096-2 (Version None)
Quarter: 2009Q3

REPORT INFORMATION
  Report Type: 
  Country: None (occurrence: None)
  Receive Date: 20090729
  Receipt Date: 20090721
  Transmission Date: 20100115
  Serious: Yes (Other)
  Sender: FDA-Public Use
  Company Number: HU-ASTRAZENECA-2009SE05314

PATIENT
  Age: 8813 Day
  Sex: Female

DRUGS (1)
  1. SYMBICORT [Suspect]
     Indication: ASTHMA
     Route: 055
     Dates: start: 20090317, end: 20090607

REACTIONS (3)
  - COUGH [None]
  - PRODUCTIVE COUGH [None]
  - WHEEZING [None]
